FAERS Safety Report 8780525 (Version 1)
Quarter: 2012Q4

REPORT INFORMATION
  Report Type: Spontaneous
  Country: GB (occurrence: None)
  Receive Date: 20120829
  Receipt Date: 20120829
  Transmission Date: 20130627
  Serious: Yes (Other)
  Sender: FDA-Public Use
  Company Number: AUR-APL-2012-03535

PATIENT
  Sex: Female

DRUGS (2)
  1. RIBAVIRIN [Suspect]
  2. INTRON A [Suspect]

REACTIONS (2)
  - Abortion spontaneous [None]
  - Exposure via body fluid [None]
